FAERS Safety Report 24091144 (Version 1)
Quarter: 2024Q3

REPORT INFORMATION
  Report Type: Report from Study
  Country: FR (occurrence: FR)
  Receive Date: 20240715
  Receipt Date: 20240715
  Transmission Date: 20241016
  Serious: Yes (Life-Threatening, Hospitalization)
  Sender: MYLAN
  Company Number: FR-002147023-NVSC2024FR136445

PATIENT
  Sex: Female
  Weight: 72 kg

DRUGS (3)
  1. LETROZOLE [Suspect]
     Active Substance: LETROZOLE
     Indication: Product used for unknown indication
     Dosage: 1 DOSAGE FORM, QD
     Route: 065
  2. KISQALI [Suspect]
     Active Substance: RIBOCICLIB
     Indication: Hormone receptor positive HER2 negative breast cancer
     Dosage: 600 MILLIGRAM, QD
     Route: 048
     Dates: start: 20240531, end: 20240613
  3. TAXOL [Concomitant]
     Active Substance: PACLITAXEL
     Indication: Product used for unknown indication
     Dosage: UNK
     Route: 065

REACTIONS (7)
  - Sepsis [Recovering/Resolving]
  - Neutropenia [Recovered/Resolved]
  - Respiratory distress [Unknown]
  - Blood creatinine decreased [Unknown]
  - Pain [Unknown]
  - Decreased appetite [Unknown]
  - Malnutrition [Unknown]

NARRATIVE: CASE EVENT DATE: 20240612
